FAERS Safety Report 16049548 (Version 1)
Quarter: 2019Q1

REPORT INFORMATION
  Report Type: Spontaneous
  Country: JP (occurrence: JP)
  Receive Date: 20190307
  Receipt Date: 20190307
  Transmission Date: 20190418
  Serious: Yes (Other)
  Sender: FDA-Public Use
  Company Number: JP-DSJP-DSJ-2019-107706

PATIENT

DRUGS (1)
  1. LIXIANA OD TABLETS 60MG [Suspect]
     Active Substance: EDOXABAN TOSYLATE
     Indication: JOINT ARTHROPLASTY
     Dosage: 30MG/DAY
     Route: 065

REACTIONS (1)
  - Staphylococcal infection [Not Recovered/Not Resolved]
